FAERS Safety Report 11244649 (Version 2)
Quarter: 2015Q3

REPORT INFORMATION
  Report Type: Spontaneous
  Country: US (occurrence: US)
  Receive Date: 20150707
  Receipt Date: 20150928
  Transmission Date: 20151125
  Serious: Yes (Hospitalization, Other)
  Sender: FDA-Public Use
  Company Number: US-TEVA-575208USA

PATIENT
  Age: 76 Year
  Sex: Female

DRUGS (21)
  1. PANTOPRAZOLE [Suspect]
     Active Substance: PANTOPRAZOLE SODIUM
     Indication: GASTROOESOPHAGEAL REFLUX DISEASE
     Dosage: 40 MILLIGRAM DAILY;
     Route: 065
     Dates: start: 2010
  2. PANTOPRAZOLE [Suspect]
     Active Substance: PANTOPRAZOLE SODIUM
     Indication: GASTROOESOPHAGEAL REFLUX DISEASE
  3. CLONAZEPAM. [Concomitant]
     Active Substance: CLONAZEPAM
     Dates: start: 2012
  4. VITAMIN K2 [Concomitant]
     Active Substance: MENAQUINONE 6
     Dates: start: 2008
  5. MAGNESIUM [Concomitant]
     Active Substance: MAGNESIUM
     Dates: start: 2010
  6. BIOTIN [Concomitant]
     Active Substance: BIOTIN
     Dates: start: 2014, end: 201406
  7. CITRACAL [Concomitant]
     Active Substance: CALCIUM CITRATE
     Dates: start: 2002
  8. ZETIA [Concomitant]
     Active Substance: EZETIMIBE
     Dates: start: 2003
  9. PANTOTHENIC ACID [Concomitant]
     Active Substance: PANTOTHENIC ACID
     Dates: start: 2008
  10. PANTOPRAZOLE [Suspect]
     Active Substance: PANTOPRAZOLE SODIUM
     Indication: HIATUS HERNIA
  11. ATENOLOL. [Concomitant]
     Active Substance: ATENOLOL
     Dates: start: 1997
  12. HYDROCHLOROTHIAZIDE. [Concomitant]
     Active Substance: HYDROCHLOROTHIAZIDE
     Dates: start: 1997
  13. GABAPENTIN. [Concomitant]
     Active Substance: GABAPENTIN
     Dates: start: 2014
  14. CRESTOR [Concomitant]
     Active Substance: ROSUVASTATIN CALCIUM
     Dates: start: 2009
  15. OXYBUTYNIN [Suspect]
     Active Substance: OXYBUTYNIN
     Indication: HYPERTONIC BLADDER
     Dosage: 10 MILLIGRAM DAILY;
     Route: 065
     Dates: start: 201406
  16. TOVIAZ [Concomitant]
     Active Substance: FESOTERODINE FUMARATE
     Indication: HYPERTONIC BLADDER
     Dosage: 4 MILLIGRAM DAILY;
     Dates: start: 2013, end: 2014
  17. LEVOTHYROXINE. [Concomitant]
     Active Substance: LEVOTHYROXINE
     Dates: start: 1998
  18. CYNARA SCOLYMUS [Concomitant]
     Dates: start: 2010
  19. VITAMIN D [Concomitant]
     Active Substance: CHOLECALCIFEROL
     Dates: start: 2010
  20. LOSARTAN POTASSIUM. [Concomitant]
     Active Substance: LOSARTAN POTASSIUM
     Dates: start: 2013
  21. ASPIRIN. [Concomitant]
     Active Substance: ASPIRIN
     Dates: start: 2004

REACTIONS (6)
  - Dry mouth [Not Recovered/Not Resolved]
  - Heat stroke [Unknown]
  - Alopecia [Not Recovered/Not Resolved]
  - Product substitution issue [Not Recovered/Not Resolved]
  - Lipids increased [Unknown]
  - Gastrooesophageal reflux disease [Unknown]

NARRATIVE: CASE EVENT DATE: 2011
